FAERS Safety Report 12549886 (Version 2)
Quarter: 2016Q3

REPORT INFORMATION
  Report Type: Spontaneous
  Country: US (occurrence: US)
  Receive Date: 20160712
  Receipt Date: 20160823
  Transmission Date: 20161109
  Serious: No
  Sender: FDA-Public Use
  Company Number: US-ASTRAZENECA-2016SE51726

PATIENT
  Age: 25887 Day
  Sex: Female
  Weight: 133.4 kg

DRUGS (6)
  1. SYNTHROID [Concomitant]
     Active Substance: LEVOTHYROXINE SODIUM
     Indication: THYROIDECTOMY
     Dosage: 0.175 DAILY
     Route: 048
     Dates: start: 2014
  2. BENAZEPRIL [Concomitant]
     Active Substance: BENAZEPRIL HYDROCHLORIDE
     Indication: BLOOD PRESSURE ABNORMAL
     Route: 048
     Dates: start: 2014
  3. FEMARA [Concomitant]
     Active Substance: LETROZOLE
     Indication: MASTECTOMY
     Route: 048
     Dates: start: 201509
  4. TOPROL XL [Suspect]
     Active Substance: METOPROLOL SUCCINATE
     Indication: SUPRAVENTRICULAR TACHYCARDIA
     Route: 048
     Dates: start: 2015
  5. BRILINTA [Suspect]
     Active Substance: TICAGRELOR
     Indication: STENT PLACEMENT
     Route: 048
     Dates: start: 20160509, end: 20160602
  6. BRILINTA [Suspect]
     Active Substance: TICAGRELOR
     Indication: CORONARY ARTERY DISEASE
     Route: 048
     Dates: start: 20160509, end: 20160602

REACTIONS (4)
  - Syncope [Unknown]
  - Dyspnoea [Recovered/Resolved]
  - Cold sweat [Unknown]
  - Off label use [Unknown]

NARRATIVE: CASE EVENT DATE: 20160510
